FAERS Safety Report 8266235 (Version 3)
Quarter: 2013Q2

REPORT INFORMATION
  Report Type: Report from Study
  Country: AU (occurrence: AU)
  Receive Date: 20111129
  Receipt Date: 20130515
  Transmission Date: 20140414
  Serious: Yes (Disabling)
  Sender: FDA-Public Use
  Company Number: PHHY2011AU103390

PATIENT
  Sex: Female
  Weight: 71 kg

DRUGS (9)
  1. ACLASTA [Suspect]
     Indication: OSTEOPOROSIS
     Dosage: 5 MG, UNK
     Route: 042
     Dates: start: 2010
  2. ACLASTA [Suspect]
     Dosage: 5 MG, UNK
     Route: 042
     Dates: start: 20111113
  3. ASTRIX [Concomitant]
     Dosage: UNK UKN, UNK
     Route: 048
  4. COVERSYL [Concomitant]
     Dosage: UNK UKN, UNK
     Route: 048
  5. LOSEC [Concomitant]
     Dosage: UNK UKN, UNK
     Route: 048
  6. NOTEN [Concomitant]
     Route: 048
  7. PLAQUENIL [Concomitant]
     Indication: RHEUMATOID ARTHRITIS
     Dosage: 200 MG, BID, FOR TEN YEARS
     Route: 048
  8. PREDNISONE [Concomitant]
     Dosage: UNK UKN, UNK
     Route: 048
  9. SIMVASTATIN [Concomitant]
     Dosage: UNK UKN, UNK
     Route: 048

REACTIONS (1)
  - Mantle cell lymphoma [Not Recovered/Not Resolved]
